FAERS Safety Report 18164244 (Version 1)
Quarter: 2020Q3

REPORT INFORMATION
  Report Type: Spontaneous
  Country: CN (occurrence: CN)
  Receive Date: 20200818
  Receipt Date: 20200818
  Transmission Date: 20201103
  Serious: Yes (Life-Threatening, Other)
  Sender: FDA-Public Use
  Company Number: NVSC2020CN226071

PATIENT
  Age: 57 Year
  Sex: Male

DRUGS (6)
  1. CYCLOSPORINE. [Suspect]
     Active Substance: CYCLOSPORINE
     Indication: PRODUCT USED FOR UNKNOWN INDICATION
     Dosage: UNK
     Route: 065
     Dates: start: 20180615
  2. AMIKACIN. [Concomitant]
     Active Substance: AMIKACIN
     Indication: INFECTION
     Dosage: UNK
     Route: 065
     Dates: start: 20180625
  3. TIGECYCLINE. [Concomitant]
     Active Substance: TIGECYCLINE
     Indication: PRODUCT USED FOR UNKNOWN INDICATION
     Dosage: 50 MG, Q12H
     Route: 065
  4. FOSFOMYCIN [Concomitant]
     Active Substance: FOSFOMYCIN
     Indication: INFECTION
     Dosage: UNK
     Route: 065
     Dates: start: 20180625
  5. CARPROFEN [Concomitant]
     Active Substance: CARPROFEN
     Indication: INFECTION
     Dosage: UNK
     Route: 065
     Dates: start: 20180625
  6. IMMUNE GLOBULIN NOS [Concomitant]
     Active Substance: IMMUNE GLOBULIN NOS
     Indication: PRODUCT USED FOR UNKNOWN INDICATION
     Dosage: 15 G, QD
     Route: 065

REACTIONS (14)
  - Klebsiella infection [Unknown]
  - Biliary fistula [Unknown]
  - Acute kidney injury [Unknown]
  - Septic shock [Unknown]
  - Intra-abdominal haemorrhage [Unknown]
  - Blood bilirubin increased [Unknown]
  - Gastrointestinal haemorrhage [Unknown]
  - Abdominal infection [Unknown]
  - Hepatic cirrhosis [Unknown]
  - Body temperature increased [Unknown]
  - Shock haemorrhagic [Unknown]
  - Intestinal obstruction [Unknown]
  - Cardiac failure [Unknown]
  - Cardiac hypertrophy [Unknown]

NARRATIVE: CASE EVENT DATE: 20180627
